FAERS Safety Report 8331515-1 (Version None)
Quarter: 2012Q2

REPORT INFORMATION
  Report Type: 
  Country: None (occurrence: None)
  Receive Date: 20120502
  Receipt Date: 20120419
  Transmission Date: 20120825
  Serious: No
  Sender: FDA-Public Use
  Company Number: US-AMGEN-USASP2012024960

PATIENT
  Age: 80 Year
  Sex: Female

DRUGS (1)
  1. ENBREL [Suspect]
     Indication: PSORIASIS
     Dosage: 50 MG, 2 TIMES/WK
     Dates: start: 20120305

REACTIONS (7)
  - FEELING COLD [None]
  - PARAESTHESIA [None]
  - PAIN [None]
  - OEDEMA PERIPHERAL [None]
  - MASS [None]
  - DRUG INEFFECTIVE [None]
  - ERYTHEMA [None]
